FAERS Safety Report 4488155-4 (Version None)
Quarter: 2004Q4

REPORT INFORMATION
  Report Type: 
  Country: None (occurrence: None)
  Receive Date: 20041025
  Receipt Date: 20041013
  Transmission Date: 20050328
  Serious: Yes (Hospitalization)
  Sender: FDA-Public Use
  Company Number: 2001047754DE

PATIENT
  Age: 63 Year
  Sex: Female

DRUGS (6)
  1. CAMPTOSAR [Suspect]
     Indication: COLON CANCER
     Dosage: 150 MG
     Dates: start: 20010301, end: 20010302
  2. FLUOROURACIL [Suspect]
     Indication: COLON CANCER
     Dosage: 3790 MG
  3. LEUCOVORIN CALCIUM [Suspect]
     Indication: COLON CANCER
     Dosage: 930 MG
  4. PANTOPRAZOLE [Concomitant]
  5. ZOFRAN [Concomitant]
  6. EFFORTIL (ETILEFRINE HYDROCHLORIDE) [Concomitant]

REACTIONS (4)
  - DEEP VEIN THROMBOSIS [None]
  - HYPOPERFUSION [None]
  - NAUSEA [None]
  - VOMITING [None]
